FAERS Safety Report 18080063 (Version 3)
Quarter: 2020Q3

REPORT INFORMATION
  Report Type: Report from Study
  Country: JP (occurrence: JP)
  Receive Date: 20200728
  Receipt Date: 20200904
  Transmission Date: 20201103
  Serious: Yes (Hospitalization)
  Sender: FDA-Public Use
  Company Number: JP-PFIZER INC-2020282430

PATIENT
  Age: 87 Year
  Sex: Female
  Weight: 54.2 kg

DRUGS (10)
  1. XELJANZ [Suspect]
     Active Substance: TOFACITINIB CITRATE
     Dosage: 5 MG, 2X/DAY
     Route: 048
     Dates: start: 20200508, end: 2020
  2. RABEPRAZOLE [Concomitant]
     Active Substance: RABEPRAZOLE
     Route: 048
  3. FOLIAMIN [Concomitant]
     Active Substance: FOLIC ACID
     Route: 048
  4. XELJANZ [Suspect]
     Active Substance: TOFACITINIB CITRATE
     Dosage: 5 MG, 2X/DAY
     Route: 048
     Dates: start: 20200316, end: 20200424
  5. METOLATE [Concomitant]
     Active Substance: METHOTREXATE
     Dosage: 8 MG, WEEKLY
     Dates: end: 20200228
  6. CELECOX [Concomitant]
     Active Substance: CELECOXIB
     Route: 048
  7. METOLATE [Concomitant]
     Active Substance: METHOTREXATE
     Dosage: 8 MG, WEEKLY
     Dates: start: 20200316, end: 20200424
  8. METOLATE [Concomitant]
     Active Substance: METHOTREXATE
     Dosage: 8 UNK
     Dates: start: 20200508, end: 2020
  9. XELJANZ [Suspect]
     Active Substance: TOFACITINIB CITRATE
     Indication: RHEUMATOID ARTHRITIS
     Dosage: 5 MG, 2X/DAY
     Route: 048
     Dates: start: 20170322, end: 20200228
  10. PREDNISOLONE. [Concomitant]
     Active Substance: PREDNISOLONE
     Dosage: 5 MG, DAILY
     Route: 048

REACTIONS (1)
  - Salpingitis [Recovering/Resolving]

NARRATIVE: CASE EVENT DATE: 20200228
